FAERS Safety Report 6193979-1 (Version None)
Quarter: 2009Q2

REPORT INFORMATION
  Report Type: 
  Country: None (occurrence: None)
  Receive Date: 20090518
  Receipt Date: 20090511
  Transmission Date: 20091009
  Serious: Yes (Other)
  Sender: FDA-Public Use
  Company Number: PHHY2009ES17844

PATIENT
  Age: 65 Year
  Sex: Male

DRUGS (2)
  1. ZOMETA [Suspect]
     Indication: METASTASES TO BONE
     Dosage: 40 MG, QD
     Route: 042
     Dates: start: 20070420
  2. CORTICOSTEROIDS [Concomitant]
     Indication: METASTASES TO BONE

REACTIONS (2)
  - OSTEONECROSIS [None]
  - TOOTH LOSS [None]
